FAERS Safety Report 11787191 (Version 3)
Quarter: 2016Q2

REPORT INFORMATION
  Report Type: Spontaneous
  Country: JP (occurrence: JP)
  Receive Date: 20151130
  Receipt Date: 20160516
  Transmission Date: 20160815
  Serious: Yes (Life-Threatening, Hospitalization, Other)
  Sender: FDA-Public Use
  Company Number: JP-009507513-1511JPN015173

PATIENT
  Age: 72 Year
  Sex: Female

DRUGS (5)
  1. JANUVIA [Suspect]
     Active Substance: SITAGLIPTIN PHOSPHATE
     Indication: DIABETES MELLITUS
     Dosage: DAILY DOSAGE UNKNOWN, AFTER DINNER
     Route: 048
     Dates: start: 20140226, end: 20140418
  2. CYLOFT [Suspect]
     Active Substance: EPALRESTAT
     Indication: DIABETIC NEUROPATHY
     Dosage: DAILY DOSE UNKNOWN, AFTER EVERY MEAL
     Route: 048
     Dates: start: 20131220, end: 20140410
  3. GLIMICRON [Concomitant]
     Active Substance: GLICLAZIDE
     Indication: DIABETES MELLITUS
     Dosage: 30 MG, QD
     Route: 048
     Dates: start: 20131015, end: 20140410
  4. METHYCOBAL [Concomitant]
     Active Substance: METHYLCOBALAMIN
     Indication: NEURALGIA
     Dosage: DAILY DOSE UNKNOWN, AFTER EVERY MEAL
     Route: 048
     Dates: start: 20140128, end: 20140410
  5. ASTRIC [Concomitant]
     Active Substance: ACYCLOVIR
     Dosage: DAILY DOSAGE UNKNOWN, AFTER EVERY MEAL, BEFORE BED
     Route: 048
     Dates: start: 20140326, end: 20140328

REACTIONS (1)
  - Drug-induced liver injury [Recovered/Resolved]

NARRATIVE: CASE EVENT DATE: 20140410
